FAERS Safety Report 13603059 (Version 3)
Quarter: 2017Q3

REPORT INFORMATION
  Report Type: Spontaneous
  Country: US (occurrence: US)
  Receive Date: 20170601
  Receipt Date: 20170726
  Transmission Date: 20171127
  Serious: Yes (Other)
  Sender: FDA-Public Use
  Company Number: US-SAOL THERAPEUTICS-2017SAO00939

PATIENT
  Age: 39 Year
  Sex: Female
  Weight: 64.4 kg

DRUGS (4)
  1. ^4 OTHER [INTRATHECAL] MEDS^ [Suspect]
     Active Substance: UNSPECIFIED INGREDIENT
     Route: 037
  2. SALINE [Suspect]
     Active Substance: SODIUM CHLORIDE
     Dosage: UNK
     Route: 037
     Dates: start: 20111109
  3. BACLOFEN. [Suspect]
     Active Substance: BACLOFEN
     Indication: PAIN
     Dosage: UNK
  4. BACLOFEN. [Suspect]
     Active Substance: BACLOFEN
     Indication: PAIN

REACTIONS (4)
  - Leg amputation [Not Recovered/Not Resolved]
  - Off label use [Not Recovered/Not Resolved]
  - Staphylococcal infection [Recovered/Resolved]
  - Implant site infection [Recovered/Resolved]

NARRATIVE: CASE EVENT DATE: 201106
